FAERS Safety Report 7088508-4 (Version None)
Quarter: 2010Q4

REPORT INFORMATION
  Report Type: 
  Country: None (occurrence: None)
  Receive Date: 20101108
  Receipt Date: 20101029
  Transmission Date: 20110411
  Serious: Yes (Other)
  Sender: FDA-Public Use
  Company Number: GB-ROCHE-738109

PATIENT
  Age: 89 Year
  Sex: Male

DRUGS (2)
  1. TAMIFLU [Suspect]
     Indication: PAIN
     Route: 065
     Dates: start: 20101027, end: 20101028
  2. TAMIFLU [Suspect]
     Route: 065
     Dates: start: 20101029

REACTIONS (1)
  - PERONEAL NERVE PALSY [None]
